FAERS Safety Report 9019669 (Version 1)
Quarter: 2013Q1

REPORT INFORMATION
  Report Type: Spontaneous
  Country: IT (occurrence: DE)
  Receive Date: 20130118
  Receipt Date: 20130118
  Transmission Date: 20140127
  Serious: Yes (Disabling, Other)
  Sender: FDA-Public Use
  Company Number: DE-FRI-1000041685

PATIENT
  Age: 71 None
  Sex: Female

DRUGS (1)
  1. FOSFOMYCIN [Suspect]
     Indication: URINARY TRACT INFECTION
     Dosage: 3000 MG
     Route: 048
     Dates: start: 20121105, end: 20121105

REACTIONS (2)
  - Muscular weakness [Recovered/Resolved]
  - Arthralgia [Recovered/Resolved]
